FAERS Safety Report 5153804-4 (Version None)
Quarter: 2006Q4

REPORT INFORMATION
  Report Type: 
  Country: None (occurrence: None)
  Receive Date: 20061120
  Receipt Date: 20061113
  Transmission Date: 20070319
  Serious: Yes (Other)
  Sender: FDA-Public Use
  Company Number: US-KINGPHARMUSA00001-K200601448

PATIENT
  Age: 44 Year
  Sex: Male

DRUGS (5)
  1. SEPTRA [Suspect]
     Indication: PROPHYLAXIS
     Dosage: 1 TABLET, QD
     Route: 048
     Dates: start: 20050706
  2. SUSTIVA [Suspect]
     Indication: HIV INFECTION
     Dosage: 600 MG, QD
     Route: 048
     Dates: start: 20050706, end: 20050820
  3. ZERIT [Concomitant]
     Dates: start: 20060706
  4. EPIVIR [Concomitant]
     Dates: start: 20050706
  5. LEDERFOLIN                         /00566702/ [Concomitant]
     Dates: start: 20050706

REACTIONS (1)
  - PSYCHOTIC DISORDER [None]
